FAERS Safety Report 6864147-2 (Version None)
Quarter: 2010Q3

REPORT INFORMATION
  Report Type: 
  Country: None (occurrence: None)
  Receive Date: 20100721
  Receipt Date: 20080317
  Transmission Date: 20110219
  Serious: No
  Sender: FDA-Public Use
  Company Number: US-PFIZER INC-2008025613

PATIENT
  Sex: Female
  Weight: 86.4 kg

DRUGS (6)
  1. CHANTIX [Suspect]
     Indication: SMOKING CESSATION THERAPY
     Dates: start: 20070801, end: 20071201
  2. ADVAIR DISKUS 100/50 [Concomitant]
  3. QUINAPRIL [Concomitant]
  4. NORVASC [Concomitant]
  5. XANAX [Concomitant]
  6. CITALOPRAM [Concomitant]

REACTIONS (3)
  - EPISTAXIS [None]
  - GINGIVAL BLEEDING [None]
  - GINGIVAL INFECTION [None]
